FAERS Safety Report 17469371 (Version 8)
Quarter: 2021Q2

REPORT INFORMATION
  Report Type: Report from Study
  Country: CA (occurrence: CA)
  Receive Date: 20200227
  Receipt Date: 20210527
  Transmission Date: 20210716
  Serious: Yes (Hospitalization, Disabling)
  Sender: FDA-Public Use
  Company Number: PHHY2014CA003762

PATIENT
  Age: 43 Year
  Sex: Female

DRUGS (31)
  1. XOLAIR [Suspect]
     Active Substance: OMALIZUMAB
     Dosage: UNK
     Route: 058
     Dates: start: 20170707
  2. XOLAIR [Suspect]
     Active Substance: OMALIZUMAB
     Dosage: UNK
     Route: 058
     Dates: start: 201708
  3. XOLAIR [Suspect]
     Active Substance: OMALIZUMAB
     Dosage: 225 MG EVERY 2 WEEKS
     Route: 058
  4. SYMBICORT [Concomitant]
     Active Substance: BUDESONIDE\FORMOTEROL FUMARATE DIHYDRATE
     Indication: COUGH
     Dosage: UNK
     Route: 065
  5. XOLAIR [Suspect]
     Active Substance: OMALIZUMAB
     Dosage: UNK
     Route: 058
     Dates: start: 20170726
  6. VENTOLIN [Concomitant]
     Active Substance: ALBUTEROL SULFATE
     Indication: ASTHMA
     Dosage: 4?5X/DAY
     Route: 065
  7. XOLAIR [Suspect]
     Active Substance: OMALIZUMAB
     Dosage: UNK
     Route: 058
     Dates: start: 20160518
  8. XOLAIR [Suspect]
     Active Substance: OMALIZUMAB
     Dosage: 225 MG, EVERY 4 WEEKS
     Route: 058
  9. XOLAIR [Suspect]
     Active Substance: OMALIZUMAB
     Dosage: 225 MG EVERY 2 WEEKS
     Route: 058
  10. XOLAIR [Suspect]
     Active Substance: OMALIZUMAB
     Dosage: 225 MG EVERY 2 WEEKS
     Route: 058
     Dates: start: 20170912
  11. XOLAIR [Suspect]
     Active Substance: OMALIZUMAB
     Dosage: 225 MG EVERY 2 WEEKS
     Route: 058
     Dates: start: 20190211
  12. XOLAIR [Suspect]
     Active Substance: OMALIZUMAB
     Dosage: 225 MG EVERY 2 WEEKS
     Route: 058
     Dates: start: 20190311
  13. PREDNISONE. [Suspect]
     Active Substance: PREDNISONE
     Indication: CHEST DISCOMFORT
  14. XOLAIR [Suspect]
     Active Substance: OMALIZUMAB
     Indication: ASTHMA
     Dosage: 225 MG, BIW
     Route: 058
     Dates: start: 20140109
  15. PREDNISONE. [Suspect]
     Active Substance: PREDNISONE
     Indication: DYSPNOEA
  16. PREDNISONE. [Suspect]
     Active Substance: PREDNISONE
     Indication: RESPIRATORY DISORDER
  17. PREDNISONE. [Suspect]
     Active Substance: PREDNISONE
     Indication: LUNG DISORDER
  18. XOLAIR [Suspect]
     Active Substance: OMALIZUMAB
     Dosage: UNK
     Route: 058
     Dates: start: 20160223
  19. XOLAIR [Suspect]
     Active Substance: OMALIZUMAB
     Dosage: 225 MG EVERY 2 WEEKS
     Route: 058
     Dates: start: 20180912
  20. XOLAIR [Suspect]
     Active Substance: OMALIZUMAB
     Dosage: 225 MG EVERY 2 WEEKS
     Route: 058
  21. PREDNISONE. [Suspect]
     Active Substance: PREDNISONE
     Indication: ASTHMA
     Dosage: UNK
     Route: 065
  22. SINGULAIR [Concomitant]
     Active Substance: MONTELUKAST SODIUM
     Indication: PRODUCT USED FOR UNKNOWN INDICATION
     Dosage: UNK
     Route: 065
  23. XOLAIR [Suspect]
     Active Substance: OMALIZUMAB
     Dosage: 225 MG EVERY 2 WEEKS
     Route: 058
     Dates: start: 20150130
  24. XOLAIR [Suspect]
     Active Substance: OMALIZUMAB
     Dosage: 225 MG EVERY 2 WEEKS
     Route: 058
     Dates: start: 20190903
  25. XOLAIR [Suspect]
     Active Substance: OMALIZUMAB
     Dosage: 225 MG EVERY 2 WEEKS
     Route: 058
     Dates: start: 20200128
  26. XOLAIR [Suspect]
     Active Substance: OMALIZUMAB
     Dosage: 225 MG EVERY 2 WEEKS
     Route: 058
     Dates: start: 20200128
  27. XOLAIR [Suspect]
     Active Substance: OMALIZUMAB
     Dosage: 225 MG EVERY 2 WEEKS
     Route: 058
     Dates: start: 20200211
  28. PREDNISONE. [Suspect]
     Active Substance: PREDNISONE
     Indication: COUGH
  29. XOLAIR [Suspect]
     Active Substance: OMALIZUMAB
     Dosage: 225 MG EVERY 2 WEEKS
     Route: 058
     Dates: start: 20190409
  30. XOLAIR [Suspect]
     Active Substance: OMALIZUMAB
     Dosage: 225 MG EVERY 2 WEEKS
     Route: 058
     Dates: start: 20200211
  31. VENTOLIN [Concomitant]
     Active Substance: ALBUTEROL SULFATE
     Indication: COUGH
     Dosage: UNK (7 MASKS)
     Route: 065
     Dates: start: 20190415

REACTIONS (38)
  - Dyspnoea [Unknown]
  - Wheezing [Recovering/Resolving]
  - Sensitivity to weather change [Unknown]
  - Insomnia [Unknown]
  - Mobility decreased [Unknown]
  - Hyperhidrosis [Unknown]
  - Seasonal allergy [Unknown]
  - Nausea [Unknown]
  - Weight increased [Unknown]
  - Dizziness [Unknown]
  - Asthma [Recovering/Resolving]
  - Upper limb fracture [Unknown]
  - Dyspnoea exertional [Unknown]
  - Obstructive airways disorder [Unknown]
  - Hypersomnia [Unknown]
  - Mental disorder [Unknown]
  - Fatigue [Unknown]
  - Cough [Recovered/Resolved]
  - Fall [Unknown]
  - Pain [Unknown]
  - Illness [Recovered/Resolved]
  - Forced expiratory volume decreased [Recovered/Resolved]
  - Weight decreased [Unknown]
  - Somnolence [Unknown]
  - Arthralgia [Unknown]
  - Myalgia [Unknown]
  - Tremor [Unknown]
  - Malaise [Unknown]
  - Chest discomfort [Unknown]
  - Respiratory disorder [Unknown]
  - Feeling abnormal [Unknown]
  - Anxiety [Unknown]
  - Headache [Unknown]
  - Loss of consciousness [Unknown]
  - Dysphonia [Unknown]
  - Depression [Unknown]
  - Oropharyngeal pain [Unknown]
  - Alopecia [Not Recovered/Not Resolved]

NARRATIVE: CASE EVENT DATE: 20160330
